FAERS Safety Report 8282700-9 (Version None)
Quarter: 2012Q2

REPORT INFORMATION
  Report Type: 
  Country: None (occurrence: None)
  Receive Date: 20120413
  Receipt Date: 20120404
  Transmission Date: 20120825
  Serious: Yes (Death, Hospitalization)
  Sender: FDA-Public Use
  Company Number: US-SANOFI-AVENTIS-2012SA022202

PATIENT
  Age: 74 Year
  Sex: Male
  Weight: 68.93 kg

DRUGS (17)
  1. SERTRALINE HYDROCHLORIDE [Concomitant]
     Indication: DEPRESSION
     Dates: start: 20120313
  2. VICODIN [Concomitant]
     Indication: PAIN
     Dates: start: 20110426
  3. METFORMIN HCL [Concomitant]
     Indication: HYPERTENSION
  4. CALCIUM CARBONATE/ERGOCALCIFEROL [Concomitant]
     Indication: NUTRITIONAL SUPPORT
  5. LACTULOSE [Concomitant]
     Indication: CONSTIPATION
     Dates: start: 20110628
  6. AMBIEN [Concomitant]
  7. FENOFIBRATE [Concomitant]
  8. VALSARTAN [Concomitant]
  9. ASPIRIN [Concomitant]
  10. BLINDED THERAPY [Suspect]
     Indication: NON-SMALL CELL LUNG CANCER STAGE IV
     Route: 042
     Dates: start: 20120313, end: 20120313
  11. METFORMIN HCL [Concomitant]
  12. LORAZEPAM [Concomitant]
     Indication: ANXIETY
     Dates: start: 20110426
  13. MULTI-VITAMINS [Concomitant]
     Indication: VITAMIN SUPPLEMENTATION
  14. SUCRALFATE [Concomitant]
     Indication: ULCER
     Dates: start: 20120228
  15. MEGESTROL ACETATE [Concomitant]
     Indication: DECREASED APPETITE
     Dates: start: 20120131
  16. DOCETAXEL [Suspect]
     Indication: NON-SMALL CELL LUNG CANCER STAGE IV
     Route: 041
     Dates: start: 20120313
  17. NEXIUM [Concomitant]
     Dates: start: 20110726

REACTIONS (3)
  - PANCYTOPENIA [None]
  - DEHYDRATION [None]
  - DIARRHOEA [None]
